FAERS Safety Report 10078730 (Version 3)
Quarter: 2014Q2

REPORT INFORMATION
  Report Type: Spontaneous
  Country: JP (occurrence: JP)
  Receive Date: 20140415
  Receipt Date: 20140505
  Transmission Date: 20141212
  Serious: Yes (Hospitalization)
  Sender: FDA-Public Use
  Company Number: JP-PFIZER INC-2014103389

PATIENT
  Age: 80 Year
  Sex: Male

DRUGS (1)
  1. ESTRACYT [Suspect]
     Indication: PROSTATE CANCER
     Dosage: UNK
     Route: 048
     Dates: start: 201403

REACTIONS (1)
  - Embolic stroke [Recovered/Resolved]
